FAERS Safety Report 6231943-4 (Version None)
Quarter: 2009Q2

REPORT INFORMATION
  Report Type: 
  Country: None (occurrence: None)
  Receive Date: 20090616
  Receipt Date: 20090609
  Transmission Date: 20091009
  Serious: Yes (Hospitalization)
  Sender: FDA-Public Use
  Company Number: ES-ABBOTT-09P-144-0578803-00

PATIENT
  Age: 4 Day

DRUGS (3)
  1. DEPAKENE [Suspect]
     Indication: CONVULSION
     Route: 042
  2. PHENOBARBITAL TAB [Concomitant]
     Indication: CONVULSION
  3. PHENYTOIN [Concomitant]
     Indication: CONVULSION

REACTIONS (8)
  - CONFUSIONAL STATE [None]
  - DRUG LEVEL BELOW THERAPEUTIC [None]
  - DYSPNOEA [None]
  - HYPERAMMONAEMIA [None]
  - LETHARGY [None]
  - LOSS OF CONSCIOUSNESS [None]
  - METABOLIC ENCEPHALOPATHY [None]
  - REGURGITATION [None]
